FAERS Safety Report 7489467-2 (Version None)
Quarter: 2011Q2

REPORT INFORMATION
  Report Type: 
  Country: None (occurrence: None)
  Receive Date: 20110518
  Receipt Date: 20110512
  Transmission Date: 20111010
  Serious: Yes (Death, Other)
  Sender: FDA-Public Use
  Company Number: US-RB-026600-11

PATIENT
  Sex: Male

DRUGS (4)
  1. SORAFENIB [Concomitant]
     Indication: HEPATIC NEOPLASM MALIGNANT
     Dosage: DOSING DETAILS UNKNOWN
     Route: 065
  2. PLACEBO [Concomitant]
     Indication: HEPATIC NEOPLASM MALIGNANT
     Dosage: DOSING DETAILS UNKNOWN
     Route: 065
  3. ERLOTINIB HYDROCHLORIDE [Concomitant]
     Indication: HEPATIC NEOPLASM MALIGNANT
     Dosage: DOSING DETAILS UNKNOWN
     Route: 065
  4. SUBOXONE [Suspect]
     Indication: DRUG DEPENDENCE
     Route: 065
     Dates: start: 20100910

REACTIONS (1)
  - HEPATIC NEOPLASM MALIGNANT [None]
